FAERS Safety Report 4678624-6 (Version None)
Quarter: 2005Q2

REPORT INFORMATION
  Report Type: 
  Country: None (occurrence: None)
  Receive Date: 20050531
  Receipt Date: 20050531
  Transmission Date: 20051028
  Serious: Yes (Hospitalization, Other)
  Sender: FDA-Public Use
  Company Number: None

PATIENT
  Age: 43 Year
  Sex: Male
  Weight: 102.0593 kg

DRUGS (1)
  1. MEDROL [Suspect]
     Indication: GOUT
     Dates: start: 19940401, end: 19940430

REACTIONS (1)
  - ASEPTIC NECROSIS BONE [None]
